FAERS Safety Report 8911572 (Version 1)
Quarter: 2012Q4

REPORT INFORMATION
  Report Type: 
  Country: SE (occurrence: SE)
  Receive Date: 20121116
  Receipt Date: 20121116
  Transmission Date: 20130627
  Serious: Yes (Hospitalization)
  Sender: FDA-Public Use
  Company Number: SE-PFIZER INC-2012283096

PATIENT
  Age: 64 Year
  Sex: Female
  Weight: 40.3 kg

DRUGS (11)
  1. GENOTROPIN [Suspect]
     Dosage: 0.53 mg, 1x/day, 7 injections/week
     Route: 058
     Dates: start: 19990331
  2. LEVOTHYROXINE [Concomitant]
     Indication: THYROID DISORDER
     Dosage: UNK
     Dates: start: 19740101
  3. LEVOTHYROXINE [Concomitant]
     Indication: PRIMARY HYPOTHYROIDISM
  4. CYCLABIL [Concomitant]
     Indication: LUTEINISING HORMONE DEFICIENCY
     Dosage: UNK
     Dates: start: 19790101
  5. CYCLABIL [Concomitant]
     Indication: FOLLICLE-STIMULATING HORMONE DEFICIENCY
  6. CYCLABIL [Concomitant]
     Indication: OVARIAN DISORDER
  7. CYCLABIL [Concomitant]
     Indication: HYPOGONADISM
  8. CORTISONE ACETATE [Concomitant]
     Indication: CORTICOTROPHIN DECREASED
     Dosage: UNK
     Dates: start: 19900801
  9. CIPRAMIL [Concomitant]
     Dosage: UNK
     Dates: start: 19910331
  10. BEHEPAN [Concomitant]
     Indication: PERNICIOUS ANAEMIA
     Dosage: UNK
     Dates: start: 19910401
  11. EFEXOR [Concomitant]
     Dosage: UNK
     Dates: start: 20010626

REACTIONS (2)
  - Vomiting [Unknown]
  - Diarrhoea [Unknown]
